FAERS Safety Report 6934497-X (Version None)
Quarter: 2010Q3

REPORT INFORMATION
  Report Type: 
  Country: None (occurrence: None)
  Receive Date: 20100820
  Receipt Date: 20100809
  Transmission Date: 20110219
  Serious: No
  Sender: FDA-Public Use
  Company Number: BR-US-EMD SERONO, INC.-7013986

PATIENT
  Sex: Female

DRUGS (6)
  1. REBIF [Suspect]
     Indication: RELAPSING-REMITTING MULTIPLE SCLEROSIS
     Route: 058
     Dates: start: 20020415
  2. ARTIFICIAL SLIVA [Suspect]
     Dates: start: 20091201
  3. NORIPURUM [Concomitant]
     Dates: start: 20100101
  4. ZELMAC [Concomitant]
  5. ZINC [Concomitant]
  6. SERTRALINE HYDROCHLORIDE [Concomitant]

REACTIONS (4)
  - BONE DENSITY DECREASED [None]
  - SENSITIVITY OF TEETH [None]
  - TOOTHACHE [None]
  - URINARY TRACT INFECTION [None]
